FAERS Safety Report 8327055-6 (Version None)
Quarter: 2012Q2

REPORT INFORMATION
  Report Type: 
  Country: None (occurrence: None)
  Receive Date: 20120501
  Receipt Date: 20111219
  Transmission Date: 20120825
  Serious: No
  Sender: FDA-Public Use
  Company Number: US-SANOFI-AVENTIS-2011SA083190

PATIENT
  Sex: Female

DRUGS (1)
  1. APIDRA [Suspect]
     Indication: TYPE 2 DIABETES MELLITUS
     Dosage: FREQUENCY: 1-2 TIMES DAILY.DOSE: ON A SLIDING SCALE
     Route: 058
     Dates: start: 20100101, end: 20100101

REACTIONS (1)
  - HUNGER [None]
